FAERS Safety Report 7076986-6 (Version None)
Quarter: 2010Q4

REPORT INFORMATION
  Report Type: 
  Country: None (occurrence: None)
  Receive Date: 20101101
  Receipt Date: 20101019
  Transmission Date: 20110411
  Serious: No
  Sender: FDA-Public Use
  Company Number: US-ROXANE LABORATORIES, INC.-2010-RO-01437RO

PATIENT

DRUGS (1)
  1. FLUTICASONE PROPIONATE [Suspect]
     Route: 045

REACTIONS (1)
  - HEADACHE [None]
